FAERS Safety Report 4448368-4 (Version None)
Quarter: 2004Q3

REPORT INFORMATION
  Report Type: 
  Country: None (occurrence: None)
  Receive Date: 20040910
  Receipt Date: 20040910
  Transmission Date: 20050211
  Serious: No
  Sender: FDA-Public Use
  Company Number: None

PATIENT
  Age: 64 Year
  Sex: Female

DRUGS (9)
  1. BEXTRA [Suspect]
     Indication: INFLAMMATION
     Dosage: 10 MG ONCE A DAY BY MOUTH
     Route: 048
     Dates: start: 20040715, end: 20040729
  2. METFORMIN [Concomitant]
  3. LIPITOR [Concomitant]
  4. LOTENSIN [Concomitant]
  5. GLYBURIDE [Concomitant]
  6. TOPROL-XL [Concomitant]
  7. ASPIRIN [Concomitant]
  8. MULTI-VITAMIN [Concomitant]
  9. VITAMIN E [Concomitant]

REACTIONS (1)
  - BLOOD PRESSURE INCREASED [None]
